FAERS Safety Report 5940847-3 (Version None)
Quarter: 2008Q4

REPORT INFORMATION
  Report Type: 
  Country: None (occurrence: None)
  Receive Date: 20081031
  Receipt Date: 20081027
  Transmission Date: 20090506
  Serious: Yes (Death, Life-Threatening)
  Sender: FDA-Public Use
  Company Number: 2008JP004313

PATIENT
  Age: 1 Year
  Sex: 0
  Weight: 9.9 kg

DRUGS (21)
  1. FUNGUARD(MICAFUNGIN) INJECTION [Suspect]
     Dosage: 10 MG, UID/QD, IV DRIP;  50 MG, UID/QD, IV DRIP
     Route: 041
     Dates: start: 20080516, end: 20080528
  2. FUNGUARD(MICAFUNGIN) INJECTION [Suspect]
     Dosage: 10 MG, UID/QD, IV DRIP;  50 MG, UID/QD, IV DRIP
     Route: 041
     Dates: start: 20080529, end: 20080530
  3. KEITEN (CEFPIROME SULFATE) INJECTION [Concomitant]
  4. NEU-UP (NARTOGRASTIM) INJECTION [Concomitant]
  5. PENICILLIN (PIPERACILLIN SODIUM) INJECTION [Concomitant]
  6. CYCLOPHOSPHAMIDE [Concomitant]
  7. MESNA [Concomitant]
  8. CISPLATIN [Concomitant]
  9. ONCOVIN (VINCRISTINE SULFATE) INJECTION [Concomitant]
  10. METHOTREXATE [Concomitant]
  11. DECADRON (DEXAMETHASONE PHOSPHATE) INJECTION [Concomitant]
  12. AMBISOME INJECTION [Concomitant]
  13. VFEND [Concomitant]
  14. CARBENIN (BETAMIPRON, PANIPENEM) INJECTION [Concomitant]
  15. DALACIN INJECTION [Concomitant]
  16. MEROPEN (MEROPENEM) INJECTION [Concomitant]
  17. VANCOMYCIN [Concomitant]
  18. ACYCLOVIR [Concomitant]
  19. FRAGMIN [Concomitant]
  20. IMMUNE GLOBULIN INTRAVENOUS (HUMAN) [Concomitant]
  21. ANTHROBIN P (ANTITHROMBIN III) [Concomitant]

REACTIONS (7)
  - ABSCESS FUNGAL [None]
  - BACTERIAL INFECTION [None]
  - DISSEMINATED INTRAVASCULAR COAGULATION [None]
  - GASTROINTESTINAL HAEMORRHAGE [None]
  - HISTIOCYTOSIS HAEMATOPHAGIC [None]
  - LIVER ABSCESS [None]
  - SHOCK HAEMORRHAGIC [None]
